FAERS Safety Report 8406992-8 (Version None)
Quarter: 2012Q2

REPORT INFORMATION
  Report Type: 
  Country: None (occurrence: None)
  Receive Date: 20120604
  Receipt Date: 20120531
  Transmission Date: 20120825
  Serious: Yes (Death, Other)
  Sender: FDA-Public Use
  Company Number: BR-PFIZER INC-2012060708

PATIENT
  Age: 69 Year
  Sex: Male
  Weight: 56 kg

DRUGS (3)
  1. SUTENT [Suspect]
     Indication: GASTROINTESTINAL STROMAL TUMOUR
     Dosage: 50 MG, 1X/DAY
     Route: 048
     Dates: start: 20100101
  2. SUTENT [Suspect]
     Indication: GASTROINTESTINAL CANCER METASTATIC
     Dosage: 50 MG (ONE CAPSULE), 1X/DAY
     Route: 048
     Dates: start: 20120303
  3. PARACETAMOL [Concomitant]
     Dosage: UNK

REACTIONS (10)
  - PIGMENTATION LIP [None]
  - JOINT SWELLING [None]
  - TONGUE DISORDER [None]
  - RESPIRATORY DISTRESS [None]
  - DEATH [None]
  - SWOLLEN TONGUE [None]
  - RASH MACULAR [None]
  - WEIGHT DECREASED [None]
  - ARTHRALGIA [None]
  - DYSPNOEA [None]
